FAERS Safety Report 4648598-2 (Version None)
Quarter: 2005Q2

REPORT INFORMATION
  Report Type: 
  Country: None (occurrence: None)
  Receive Date: 20050429
  Receipt Date: 20050420
  Transmission Date: 20051028
  Serious: Yes (Other)
  Sender: FDA-Public Use
  Company Number: 200513526GDDC

PATIENT
  Age: 59 Year
  Sex: Female
  Weight: 62 kg

DRUGS (5)
  1. GAVISCON [Suspect]
     Indication: GASTROOESOPHAGEAL REFLUX DISEASE
     Dosage: DOSE: UNK
     Route: 048
     Dates: start: 20030101
  2. GAVISCON [Suspect]
     Dosage: DOSE: UNK
     Route: 048
     Dates: start: 20030101
  3. LITHIUM CARBONATE [Concomitant]
     Dosage: DOSE: UNK
  4. PANTOPRAZOLE SODIUM [Concomitant]
     Dosage: DOSE: UNK
  5. UNKNOWN DRUG [Concomitant]
     Dosage: DOSE: UNK

REACTIONS (7)
  - CONFUSIONAL STATE [None]
  - CONVULSION [None]
  - DISORIENTATION [None]
  - DRUG INEFFECTIVE [None]
  - FEELING ABNORMAL [None]
  - RESPIRATORY ARREST [None]
  - SLEEP DISORDER [None]
